FAERS Safety Report 12227093 (Version 1)
Quarter: 2016Q1

REPORT INFORMATION
  Report Type: Spontaneous
  Country: GB (occurrence: GB)
  Receive Date: 20160331
  Receipt Date: 20160331
  Transmission Date: 20160526
  Serious: Yes (Hospitalization)
  Sender: FDA-Public Use
  Company Number: GB-TEVA-646914ACC

PATIENT
  Age: 72 Year
  Sex: Female

DRUGS (11)
  1. ALENDRONIC ACID [Concomitant]
     Active Substance: ALENDRONIC ACID
  2. AMITRIPTYLINE [Concomitant]
     Active Substance: AMITRIPTYLINE
  3. DOCUSATE [Concomitant]
     Active Substance: DOCUSATE
  4. FLUDROCORTISONE [Concomitant]
     Active Substance: FLUDROCORTISONE
  5. PARACETAMOL [Concomitant]
     Active Substance: ACETAMINOPHEN
  6. CODEINE [Concomitant]
     Active Substance: CODEINE
  7. TOPIRAMATE. [Concomitant]
     Active Substance: TOPIRAMATE
  8. MORPHINE SULPHATE [Concomitant]
     Active Substance: MORPHINE SULFATE
  9. CIPROFLOXACIN. [Suspect]
     Active Substance: CIPROFLOXACIN
     Indication: PYELONEPHRITIS ACUTE
     Dosage: 1000 MILLIGRAM DAILY;
     Route: 048
     Dates: start: 20160301, end: 20160308
  10. ADCAL-D3 [Concomitant]
     Active Substance: CALCIUM CARBONATE\CHOLECALCIFEROL
  11. SENNA [Concomitant]
     Active Substance: SENNA LEAF\SENNOSIDES\SENNOSIDES A AND B

REACTIONS (1)
  - Raynaud^s phenomenon [Recovered/Resolved with Sequelae]

NARRATIVE: CASE EVENT DATE: 20160305
